FAERS Safety Report 10335279 (Version 1)
Quarter: 2014Q3

REPORT INFORMATION
  Report Type: Spontaneous
  Country: US (occurrence: US)
  Receive Date: 20140723
  Receipt Date: 20140723
  Transmission Date: 20150326
  Serious: No
  Sender: FDA-Public Use
  Company Number: US-ABBVIE-13P-163-1121442-00

PATIENT
  Sex: Female

DRUGS (1)
  1. SYNTHROID [Suspect]
     Active Substance: LEVOTHYROXINE SODIUM
     Indication: THYROID DISORDER

REACTIONS (11)
  - Depressed level of consciousness [Unknown]
  - Lethargy [Unknown]
  - Weight increased [Unknown]
  - Pruritus [Unknown]
  - Hormone level abnormal [Unknown]
  - Drug ineffective [Unknown]
  - Unevaluable event [Unknown]
  - Irritability [Unknown]
  - Feeling abnormal [Unknown]
  - Disturbance in attention [Unknown]
  - Endocrine disorder [Unknown]
